FAERS Safety Report 6711653-7 (Version None)
Quarter: 2010Q2

REPORT INFORMATION
  Report Type: 
  Country: None (occurrence: None)
  Receive Date: 20100505
  Receipt Date: 20100423
  Transmission Date: 20101027
  Serious: Yes (Hospitalization, Other)
  Sender: FDA-Public Use
  Company Number: CA-JNJCH-2010010014

PATIENT
  Age: 15 Year
  Sex: Female
  Weight: 49.9 kg

DRUGS (1)
  1. ROLAIDS MULTI-SYMPTOM [Suspect]
     Indication: DYSPEPSIA
     Dosage: TEXT:ONE TABLET ONCE A DAY OR EVERY OTHER DAY
     Route: 048

REACTIONS (7)
  - ABDOMINAL PAIN UPPER [None]
  - FALL [None]
  - HEPATIC ENZYME ABNORMAL [None]
  - RESPIRATORY ARREST [None]
  - SPLENOMEGALY [None]
  - SYNCOPE [None]
  - VOMITING [None]
